FAERS Safety Report 17477784 (Version 1)
Quarter: 2020Q1

REPORT INFORMATION
  Report Type: Spontaneous
  Country: US (occurrence: US)
  Receive Date: 20200229
  Receipt Date: 20200229
  Transmission Date: 20200409
  Serious: No
  Sender: FDA-Public Use
  Company Number: US-TORRENT-00010038

PATIENT
  Age: 56 Year
  Sex: Female

DRUGS (1)
  1. DARIFENACIN. [Suspect]
     Active Substance: DARIFENACIN
     Indication: HYPERTONIC BLADDER
     Dosage: 7.5 MG BY MOUTH, ONCE A DAY, 30 PILLS
     Dates: start: 201912

REACTIONS (1)
  - Drug ineffective [Unknown]
